FAERS Safety Report 25145447 (Version 2)
Quarter: 2025Q2

REPORT INFORMATION
  Report Type: Spontaneous
  Country: US (occurrence: US)
  Receive Date: 20250401
  Receipt Date: 20250408
  Transmission Date: 20250716
  Serious: No
  Sender: BRISTOL MYERS SQUIBB
  Company Number: US-BRISTOL-MYERS SQUIBB COMPANY-2025-048209

PATIENT
  Sex: Female

DRUGS (1)
  1. CAMZYOS [Suspect]
     Active Substance: MAVACAMTEN
     Indication: Hypertrophic cardiomyopathy

REACTIONS (6)
  - Cough [Unknown]
  - Nasopharyngitis [Unknown]
  - Dyspnoea [Unknown]
  - Fatigue [Unknown]
  - Treatment noncompliance [Unknown]
  - Dyspnoea exertional [Unknown]
